FAERS Safety Report 6583735-4 (Version None)
Quarter: 2010Q1

REPORT INFORMATION
  Report Type: 
  Country: None (occurrence: None)
  Receive Date: 20100212
  Receipt Date: 20100212
  Transmission Date: 20100710
  Serious: No
  Sender: FDA-Public Use
  Company Number: None

PATIENT

DRUGS (1)
  1. NOVO-NORDISK NOVOLIN [Suspect]
     Dates: start: 20091210

REACTIONS (2)
  - DRUG EFFECT INCREASED [None]
  - PALPITATIONS [None]
